FAERS Safety Report 18228232 (Version 2)
Quarter: 2020Q4

REPORT INFORMATION
  Report Type: Report from Study
  Country: ES (occurrence: ES)
  Receive Date: 20200903
  Receipt Date: 20201029
  Transmission Date: 20210113
  Serious: Yes (Other)
  Sender: FDA-Public Use
  Company Number: ES-PFIZER INC-2020337154

PATIENT
  Age: 69 Year
  Sex: Female
  Weight: 85 kg

DRUGS (82)
  1. PREDNISONE. [Suspect]
     Active Substance: PREDNISONE
     Dosage: 7.5 MG, 1X/DAY
     Dates: start: 20190614, end: 20190708
  2. VALGANCICLOVIR. [Concomitant]
     Active Substance: VALGANCICLOVIR
     Dosage: UNK
     Dates: start: 20190324, end: 20190401
  3. NOVORAPID [Concomitant]
     Active Substance: INSULIN ASPART
     Indication: DIABETES MELLITUS
     Dosage: UNK
     Dates: start: 20200324
  4. FUROSEMIDE. [Concomitant]
     Active Substance: FUROSEMIDE
     Indication: DIURETIC THERAPY
     Dosage: UNK
     Dates: start: 20190401, end: 20190402
  5. ATENOLOL. [Concomitant]
     Active Substance: ATENOLOL
     Dosage: UNK
     Dates: start: 20190324, end: 20190331
  6. LACTULOSE. [Concomitant]
     Active Substance: LACTULOSE
     Indication: LAXATIVE SUPPORTIVE CARE
     Dosage: UNK
     Dates: start: 20200318, end: 20200320
  7. OMEPRAZOLE. [Concomitant]
     Active Substance: OMEPRAZOLE
     Indication: PROPHYLAXIS AGAINST GASTROINTESTINAL ULCER
     Dosage: UNK
     Dates: start: 20200317, end: 20200322
  8. METHYLPREDNISOLONE SODIUM SUCCINATE. [Suspect]
     Active Substance: METHYLPREDNISOLONE SODIUM SUCCINATE
     Dosage: 20 MG, 1X/DAY
     Dates: start: 20190319, end: 20190319
  9. THYMOGLOBULIN [Suspect]
     Active Substance: LAPINE T-LYMPHOCYTE IMMUNE GLOBULIN
     Dosage: 75 MG, 1X/DAY
     Dates: start: 20190319, end: 20190319
  10. ENVARSUS XR [Suspect]
     Active Substance: TACROLIMUS
     Dosage: 6 MG, 1X/DAY
     Route: 048
     Dates: start: 20191107, end: 20200508
  11. OMEPRAZOLE. [Concomitant]
     Active Substance: OMEPRAZOLE
     Dosage: UNK
     Dates: start: 20190325
  12. LORAZEPAM. [Concomitant]
     Active Substance: LORAZEPAM
     Dosage: UNK
     Dates: start: 20190325
  13. BISOPROLOL [Concomitant]
     Active Substance: BISOPROLOL
     Indication: HYPERTENSION
     Dosage: UNK
     Dates: start: 20190316, end: 20190318
  14. ATENOLOL. [Concomitant]
     Active Substance: ATENOLOL
     Dosage: UNK
     Dates: start: 20190403
  15. INSULIN DETEMIR [Concomitant]
     Active Substance: INSULIN DETEMIR
     Dates: start: 20200329
  16. METAMIZOLE [Concomitant]
     Active Substance: METAMIZOLE
     Dosage: UNK
     Dates: start: 20190328, end: 20190328
  17. DARBEPOETIN ALFA [Concomitant]
     Active Substance: DARBEPOETIN ALFA
     Indication: ANAEMIA
     Dates: start: 20200316, end: 20200322
  18. COTRIMOXAZOLE [Concomitant]
     Active Substance: SULFAMETHOXAZOLE\TRIMETHOPRIM
     Indication: ANTIBIOTIC THERAPY
     Dosage: UNK
     Dates: start: 20190322
  19. OXYBUTYNIN. [Concomitant]
     Active Substance: OXYBUTYNIN CHLORIDE
     Indication: PROPHYLAXIS
     Dates: start: 20190322, end: 20190322
  20. METHYLPREDNISOLONE SODIUM SUCCINATE. [Suspect]
     Active Substance: METHYLPREDNISOLONE SODIUM SUCCINATE
     Dosage: 500 MG, 1X/DAY
     Dates: start: 20190319, end: 20190319
  21. PREDNISONE. [Suspect]
     Active Substance: PREDNISONE
     Dosage: 10 MG, 1X/DAY
     Dates: start: 20190412, end: 20190613
  22. ENVARSUS XR [Suspect]
     Active Substance: TACROLIMUS
     Indication: IMMUNOSUPPRESSION
     Dosage: 7 MG, 1X/DAY
     Dates: start: 20190315, end: 20190319
  23. LOSARTAN. [Concomitant]
     Active Substance: LOSARTAN
     Indication: HYPERTENSION
     Dosage: UNK
     Dates: start: 20190315, end: 20190315
  24. OMEPRAZOLE. [Concomitant]
     Active Substance: OMEPRAZOLE
     Dosage: UNK
     Dates: start: 20200323, end: 20200324
  25. PARACETAMOL [Concomitant]
     Active Substance: ACETAMINOPHEN
     Dosage: UNK
     Dates: start: 20090114, end: 20190322
  26. CLINDAMYCIN. [Concomitant]
     Active Substance: CLINDAMYCIN
     Indication: ANTIBIOTIC THERAPY
     Dosage: UNK
  27. DESMOPRESSIN [Concomitant]
     Active Substance: DESMOPRESSIN
     Indication: DIABETES MELLITUS
     Dosage: UNK
     Dates: start: 20190328, end: 20190329
  28. DEXCHLORPHENIRAMINE [Concomitant]
     Active Substance: DEXCHLORPHENIRAMINE
     Dosage: UNK
     Dates: start: 20190319, end: 20190319
  29. INSULINA ACTRAPID [Concomitant]
     Indication: DIABETES MELLITUS
     Dosage: UNK
     Dates: start: 20200316, end: 20200322
  30. CIPROFLOXACIN. [Concomitant]
     Active Substance: CIPROFLOXACIN
     Indication: ANTIBIOTIC THERAPY
     Dosage: UNK
     Dates: start: 20190320, end: 20190320
  31. LORAZEPAM. [Concomitant]
     Active Substance: LORAZEPAM
     Indication: ANXIETY
     Dosage: UNK
     Dates: start: 20190315, end: 20190324
  32. ATORVASTATIN [Concomitant]
     Active Substance: ATORVASTATIN
     Dosage: UNK
     Dates: start: 20190411
  33. NIFEDIPINE. [Concomitant]
     Active Substance: NIFEDIPINE
     Indication: HYPERTENSION
     Dosage: UNK
     Dates: start: 20190315, end: 20190322
  34. PARACETAMOL [Concomitant]
     Active Substance: ACETAMINOPHEN
     Dates: start: 20190317, end: 20190322
  35. LEVOTHYROXINE. [Concomitant]
     Active Substance: LEVOTHYROXINE
     Indication: THYROID THERAPY
     Dosage: UNK
     Dates: start: 20190322
  36. METHYLPREDNISOLONE SODIUM SUCCINATE. [Suspect]
     Active Substance: METHYLPREDNISOLONE SODIUM SUCCINATE
     Dosage: 500 MG, 1X/DAY
     Dates: start: 20190331, end: 20190331
  37. THYMOGLOBULIN [Suspect]
     Active Substance: LAPINE T-LYMPHOCYTE IMMUNE GLOBULIN
     Indication: IMMUNOSUPPRESSION
     Dosage: 100 MG, 1X/DAY
     Dates: start: 20190314, end: 20190314
  38. MYCOPHENOLATE MOFETIL. [Suspect]
     Active Substance: MYCOPHENOLATE MOFETIL
     Dosage: 1000 MG, 1X/DAY
     Dates: start: 20190314, end: 20190322
  39. PREDNISONE. [Suspect]
     Active Substance: PREDNISONE
     Dosage: 20 MG, 1X/DAY
     Dates: start: 20190324, end: 20190328
  40. PREDNISONE. [Suspect]
     Active Substance: PREDNISONE
     Dosage: 15 MG, 1X/DAY
     Dates: start: 20190405, end: 20190411
  41. ATORVASTATIN [Concomitant]
     Active Substance: ATORVASTATIN
     Indication: HYPERCHOLESTEROLAEMIA
     Dosage: UNK
     Dates: start: 20190320, end: 20190323
  42. PARACETAMOL [Concomitant]
     Active Substance: ACETAMINOPHEN
     Dosage: UNK
     Dates: start: 20190328, end: 20190404
  43. FUROSEMIDE. [Concomitant]
     Active Substance: FUROSEMIDE
     Dosage: UNK
     Dates: start: 20190402, end: 20190402
  44. PANTOPRAZOLE [Concomitant]
     Active Substance: PANTOPRAZOLE
     Dosage: UNK
     Dates: start: 20190324, end: 20190325
  45. PREDNISONE. [Suspect]
     Active Substance: PREDNISONE
     Dosage: 15 MG, 1X/DAY
     Dates: start: 20190329, end: 20190329
  46. ENVARSUS XR [Suspect]
     Active Substance: TACROLIMUS
     Dosage: 9 MG, 1X/DAY
     Route: 048
     Dates: start: 20190320, end: 20190320
  47. ENVARSUS XR [Suspect]
     Active Substance: TACROLIMUS
     Dosage: 8 MG, 1X/DAY
     Route: 048
     Dates: start: 20190330, end: 20190708
  48. DIAZEPAM. [Concomitant]
     Active Substance: DIAZEPAM
     Indication: DRUG DEPENDENCE
     Dosage: UNK
     Dates: start: 20190328, end: 20190329
  49. NIFEDIPINE. [Concomitant]
     Active Substance: NIFEDIPINE
     Dosage: UNK
     Dates: start: 20190403
  50. ONDANSETRON [Concomitant]
     Active Substance: ONDANSETRON
     Indication: PROPHYLAXIS OF NAUSEA AND VOMITING
     Dosage: UNK
     Dates: start: 20200314, end: 20200316
  51. METOCLOPRAMIDE. [Concomitant]
     Active Substance: METOCLOPRAMIDE
     Indication: PROPHYLAXIS OF NAUSEA AND VOMITING
     Dates: start: 20200317, end: 20200322
  52. BUTYLSCOPOLAMINE [Concomitant]
     Active Substance: BUTYLSCOPOLAMINE
     Indication: PROPHYLAXIS
     Dosage: UNK
     Dates: start: 20190321, end: 20190322
  53. ATROPINE. [Concomitant]
     Active Substance: ATROPINE
     Indication: ANAESTHETIC PREMEDICATION
     Dates: start: 20190328, end: 20190329
  54. METHYLPREDNISOLONE SODIUM SUCCINATE. [Suspect]
     Active Substance: METHYLPREDNISOLONE SODIUM SUCCINATE
     Indication: IMMUNOSUPPRESSION
     Dosage: 500 MG, 1X/DAY
     Dates: start: 20190314, end: 20190314
  55. METHYLPREDNISOLONE SODIUM SUCCINATE. [Suspect]
     Active Substance: METHYLPREDNISOLONE SODIUM SUCCINATE
     Dosage: 25 MG, 1X/DAY
     Dates: start: 20190315, end: 20190315
  56. MYCOPHENOLATE MOFETIL. [Suspect]
     Active Substance: MYCOPHENOLATE MOFETIL
     Indication: IMMUNOSUPPRESSION
     Dosage: 2000 MG, 1X/DAY
     Dates: start: 20190314, end: 20190322
  57. PREDNISONE. [Suspect]
     Active Substance: PREDNISONE
     Dosage: 20 MG, 1X/DAY
     Dates: start: 20190401, end: 20190404
  58. ENVARSUS XR [Suspect]
     Active Substance: TACROLIMUS
     Dosage: 11 MG, 1X/DAY
     Route: 048
     Dates: start: 20190321, end: 20190329
  59. VALGANCICLOVIR. [Concomitant]
     Active Substance: VALGANCICLOVIR
     Dosage: UNK
     Dates: start: 20191011, end: 20191113
  60. PARACETAMOL [Concomitant]
     Active Substance: ACETAMINOPHEN
     Dosage: UNK
     Dates: start: 20190319, end: 20190319
  61. TRAMADOL. [Concomitant]
     Active Substance: TRAMADOL
     Indication: PAIN MANAGEMENT
     Dosage: UNK
     Dates: start: 20190314, end: 20190316
  62. PANTOPRAZOLE [Concomitant]
     Active Substance: PANTOPRAZOLE
     Indication: PROPHYLAXIS AGAINST GASTROINTESTINAL ULCER
     Dosage: UNK
     Dates: start: 20190315, end: 20190316
  63. METAMIZOLE [Concomitant]
     Active Substance: METAMIZOLE
     Indication: PAIN MANAGEMENT
     Dosage: UNK
     Dates: start: 20190314, end: 20190317
  64. INSULIN DETEMIR [Concomitant]
     Active Substance: INSULIN DETEMIR
     Indication: DIABETES MELLITUS
     Dates: start: 20200322, end: 20200327
  65. MYCOPHENOLATE MOFETIL. [Suspect]
     Active Substance: MYCOPHENOLATE MOFETIL
     Dosage: 500 MG, 1X/DAY
     Dates: start: 20190324, end: 20190402
  66. PREDNISONE. [Suspect]
     Active Substance: PREDNISONE
     Indication: IMMUNOSUPPRESSION
     Dosage: 20 MG, 1X/DAY
     Dates: start: 20190316, end: 20190322
  67. ENVARSUS XR [Suspect]
     Active Substance: TACROLIMUS
     Dosage: 7 MG, 1X/DAY
     Dates: start: 20190708, end: 20191011
  68. ATROPINE. [Concomitant]
     Active Substance: ATROPINE
     Indication: BIOPSY
     Dosage: UNK
     Dates: start: 20191004, end: 20191004
  69. DARBEPOETIN ALFA [Concomitant]
     Active Substance: DARBEPOETIN ALFA
     Dosage: UNK
     Dates: start: 20200331, end: 20200404
  70. HYDRALAZINE [Concomitant]
     Active Substance: HYDRALAZINE HYDROCHLORIDE
     Indication: HYPERTENSION
     Dosage: UNK
     Dates: start: 20190319, end: 20190411
  71. ATENOLOL. [Concomitant]
     Active Substance: ATENOLOL
     Indication: HYPERTENSION
     Dosage: UNK
     Dates: start: 20190319, end: 20190322
  72. PARACETAMOL [Concomitant]
     Active Substance: ACETAMINOPHEN
     Indication: ANTIINFLAMMATORY THERAPY
     Dosage: UNK
     Dates: start: 20190314, end: 20190314
  73. ENOXAPARIN [Concomitant]
     Active Substance: ENOXAPARIN
     Indication: ANTICOAGULANT THERAPY
     Dosage: UNK
     Dates: start: 20200314, end: 20200317
  74. METHYLPREDNISOLONE SODIUM SUCCINATE. [Suspect]
     Active Substance: METHYLPREDNISOLONE SODIUM SUCCINATE
     Dosage: 1000 MG, 1X/DAY
     Dates: start: 20190330, end: 20190331
  75. PREDNISONE. [Suspect]
     Active Substance: PREDNISONE
     Dosage: 5 MG, 1X/DAY
     Dates: start: 20190709
  76. VALGANCICLOVIR. [Concomitant]
     Active Substance: VALGANCICLOVIR
     Dosage: UNK
     Dates: start: 20190404, end: 20190613
  77. DARBEPOETIN ALFA [Concomitant]
     Active Substance: DARBEPOETIN ALFA
     Dosage: UNK
     Dates: start: 20200405
  78. LACTULOSE. [Concomitant]
     Active Substance: LACTULOSE
     Dosage: UNK
     Dates: start: 20200321, end: 20200322
  79. DEXCHLORPHENIRAMINE [Concomitant]
     Active Substance: DEXCHLORPHENIRAMINE
     Indication: ANTIALLERGIC THERAPY
     Dosage: UNK
     Dates: start: 20190314, end: 20190314
  80. VALGANCICLOVIR. [Concomitant]
     Active Substance: VALGANCICLOVIR
     Indication: ANTIVIRAL PROPHYLAXIS
     Dosage: UNK
     Dates: start: 20190322, end: 20190322
  81. DIAZEPAM. [Concomitant]
     Active Substance: DIAZEPAM
     Dates: start: 20191004, end: 20191004
  82. MYCOPHENOLATE MOFETIL. [Suspect]
     Active Substance: MYCOPHENOLATE MOFETIL
     Dosage: 720 MG, 1X/DAY
     Dates: start: 20190402

REACTIONS (1)
  - Diabetes mellitus [Not Recovered/Not Resolved]

NARRATIVE: CASE EVENT DATE: 20190316
